FAERS Safety Report 8516566 (Version 2)
Quarter: 2016Q3

REPORT INFORMATION
  Report Type: Spontaneous
  Country: US (occurrence: US)
  Receive Date: 20120417
  Receipt Date: 20160918
  Transmission Date: 20161109
  Serious: No
  Sender: FDA-Public Use
  Company Number: US-ASTRAZENECA-2012SE06754

PATIENT
  Age: 56 Year
  Sex: Male
  Weight: 81.2 kg

DRUGS (7)
  1. BRILINTA [Suspect]
     Active Substance: TICAGRELOR
     Route: 048
  2. SIMVASTIN [Concomitant]
     Active Substance: SIMVASTATIN
     Indication: BLOOD CHOLESTEROL INCREASED
  3. PHENOBARBITAL. [Concomitant]
     Active Substance: PHENOBARBITAL
     Indication: SEIZURE
  4. ASPIRIN. [Concomitant]
     Active Substance: ASPIRIN
     Indication: ANTICOAGULANT THERAPY
  5. GENERIC FLOMAX [Concomitant]
     Indication: PROSTATOMEGALY
     Dosage: GENERIC
  6. NEXIUM [Suspect]
     Active Substance: ESOMEPRAZOLE MAGNESIUM
     Indication: SCLERODERMA
     Route: 048
     Dates: start: 19990101
  7. FISH OIL [Concomitant]
     Active Substance: FISH OIL

REACTIONS (9)
  - Blood cholesterol increased [Unknown]
  - Dyspnoea [Unknown]
  - Restlessness [Unknown]
  - Prostatomegaly [Unknown]
  - Vomiting [Unknown]
  - Chest discomfort [Unknown]
  - Off label use [Unknown]
  - Thinking abnormal [Unknown]
  - Drug dose omission [Unknown]
